FAERS Safety Report 8533019 (Version 2)
Quarter: 2013Q1

REPORT INFORMATION
  Report Type: Spontaneous
  Country: US (occurrence: US)
  Receive Date: 20120427
  Receipt Date: 20130102
  Transmission Date: 20140127
  Serious: No
  Sender: FDA-Public Use
  Company Number: US-PFIZER INC-2012097174

PATIENT
  Age: 75 Year
  Sex: Female

DRUGS (12)
  1. AMOXICILLIN [Suspect]
     Dosage: UNK
  2. CODEINE [Suspect]
     Dosage: UNK
  3. PROCARDIA [Suspect]
     Dosage: UNK
  4. NEURONTIN [Suspect]
     Dosage: UNK
  5. PENICILLIN NOS [Suspect]
     Dosage: UNK
  6. ZOCOR [Suspect]
     Dosage: UNK
  7. VASOTEC [Suspect]
     Dosage: UNK
  8. CRESTOR [Suspect]
     Dosage: UNK
  9. FOSAMAX [Suspect]
     Dosage: UNK
  10. KLONOPIN [Suspect]
     Dosage: UNK
  11. PRAVASTATIN [Suspect]
     Dosage: UNK
  12. UNSPECIFIED INGREDIENT [Suspect]

REACTIONS (1)
  - Drug hypersensitivity [Unknown]
